FAERS Safety Report 7429130-7 (Version None)
Quarter: 2011Q2

REPORT INFORMATION
  Report Type: 
  Country: None (occurrence: None)
  Receive Date: 20110421
  Receipt Date: 20110418
  Transmission Date: 20111010
  Serious: Yes (Hospitalization)
  Sender: FDA-Public Use
  Company Number: PHHO2010CA14783

PATIENT
  Sex: Male

DRUGS (3)
  1. BELATACEPT [Suspect]
     Indication: RENAL TRANSPLANT
     Dosage: 435 MG,1 MONTH
     Route: 042
     Dates: start: 20060802
  2. MYFORTIC [Suspect]
     Indication: RENAL TRANSPLANT
     Dosage: 360 MG, BID
     Route: 048
     Dates: start: 20090829
  3. PREDNISONE [Suspect]
     Indication: RENAL TRANSPLANT
     Dosage: 5 MG, DAY
     Route: 048
     Dates: start: 20061121

REACTIONS (11)
  - CHILLS [None]
  - PNEUMOPERITONEUM [None]
  - ABDOMINAL ADHESIONS [None]
  - PYREXIA [None]
  - RENAL CELL CARCINOMA [None]
  - HYPOTENSION [None]
  - LARGE INTESTINE PERFORATION [None]
  - ENTEROCOCCAL SEPSIS [None]
  - ABDOMINAL PAIN [None]
  - CHEST PAIN [None]
  - NAUSEA [None]
